FAERS Safety Report 23569134 (Version 1)
Quarter: 2024Q1

REPORT INFORMATION
  Report Type: Report from Study
  Country: AS (occurrence: AS)
  Receive Date: 20240227
  Receipt Date: 20240227
  Transmission Date: 20240410
  Serious: Yes (Other)
  Sender: FDA-Public Use
  Company Number: AS-ABBVIE-5653783

PATIENT
  Sex: Male

DRUGS (1)
  1. LUPRON DEPOT [Suspect]
     Active Substance: LEUPROLIDE ACETATE
     Indication: Prostate cancer
     Route: 030
     Dates: start: 20220301

REACTIONS (6)
  - Mass [Unknown]
  - Pruritus [Unknown]
  - Swelling [Unknown]
  - Discomfort [Unknown]
  - Adverse drug reaction [Unknown]
  - Mass [Unknown]
